FAERS Safety Report 24993402 (Version 1)
Quarter: 2025Q1

REPORT INFORMATION
  Report Type: Spontaneous
  Country: US (occurrence: US)
  Receive Date: 20250221
  Receipt Date: 20250221
  Transmission Date: 20250409
  Serious: No
  Sender: BRISTOL-MYERS SQUIBB COMPANY
  Company Number: US-BRISTOL-MYERS SQUIBB COMPANY-2025-026361

PATIENT
  Age: 22 Year
  Sex: Male
  Weight: 77.11 kg

DRUGS (1)
  1. COBENFY [Suspect]
     Active Substance: TROSPIUM CHLORIDE\XANOMELINE
     Indication: Schizophrenia
     Dosage: DOSE : 50 MG /20 MG;
     Route: 048
     Dates: start: 202501, end: 20250217

REACTIONS (4)
  - Vision blurred [Unknown]
  - Hyperhidrosis [Unknown]
  - Nausea [Unknown]
  - Dizziness [Unknown]
